FAERS Safety Report 5723266-4 (Version None)
Quarter: 2008Q2

REPORT INFORMATION
  Report Type: 
  Country: None (occurrence: None)
  Receive Date: 20080430
  Receipt Date: 20080304
  Transmission Date: 20081010
  Serious: No
  Sender: FDA-Public Use
  Company Number: US-ASTRAZENECA-2008UW04434

PATIENT
  Age: 42 Year
  Sex: Male
  Weight: 117.9 kg

DRUGS (2)
  1. NEXIUM [Suspect]
     Indication: DYSPEPSIA
     Route: 048
     Dates: start: 20080201
  2. NEXIUM [Suspect]
     Route: 048
     Dates: start: 20080201

REACTIONS (1)
  - CHEST DISCOMFORT [None]
